FAERS Safety Report 5007396-0 (Version None)
Quarter: 2006Q2

REPORT INFORMATION
  Report Type: 
  Country: None (occurrence: None)
  Receive Date: 20060517
  Receipt Date: 20060506
  Transmission Date: 20061013
  Serious: Yes (Hospitalization)
  Sender: FDA-Public Use
  Company Number: 200611954BCC

PATIENT
  Sex: Male

DRUGS (1)
  1. ALEVE [Suspect]
     Indication: ARTHRITIS

REACTIONS (3)
  - ARTHRALGIA [None]
  - GASTROINTESTINAL NECROSIS [None]
  - ULCER [None]
